FAERS Safety Report 17853090 (Version 4)
Quarter: 2020Q2

REPORT INFORMATION
  Report Type: Spontaneous
  Country: US (occurrence: US)
  Receive Date: 20200603
  Receipt Date: 20200622
  Transmission Date: 20200714
  Serious: Yes (Other)
  Sender: FDA-Public Use
  Company Number: US-AUROBINDO-AUR-APL-2020-026984

PATIENT
  Age: 76 Year
  Sex: Male
  Weight: 84.8 kg

DRUGS (1)
  1. SULFAMETHOXAZOLE AND TRIMETHOPRIM TABLETS USP 800/160 MG [Suspect]
     Active Substance: SULFAMETHOXAZOLE\TRIMETHOPRIM
     Indication: LOCALISED INFECTION
     Dosage: 2 DOSAGE FORM, DAILY
     Route: 065
     Dates: start: 20200516, end: 20200522

REACTIONS (7)
  - Choking [Recovered/Resolved]
  - Foreign body in throat [Recovered/Resolved]
  - Product size issue [Unknown]
  - Wrong technique in product usage process [Unknown]
  - Near death experience [Recovered/Resolved]
  - Oropharyngeal pain [Recovered/Resolved]
  - Product use complaint [Unknown]

NARRATIVE: CASE EVENT DATE: 20200516
